FAERS Safety Report 6971517-0 (Version None)
Quarter: 2010Q3

REPORT INFORMATION
  Report Type: 
  Country: None (occurrence: None)
  Receive Date: 20100908
  Receipt Date: 20100827
  Transmission Date: 20110219
  Serious: Yes (Life-Threatening, Hospitalization)
  Sender: FDA-Public Use
  Company Number: GXKR2010CH09790

PATIENT
  Age: 60 Year
  Sex: Male

DRUGS (1)
  1. VERAPAMIL (NGX) [Suspect]
     Indication: PALPITATIONS
     Dosage: 6 DF, WITHIN 6 HOURS
     Route: 065

REACTIONS (7)
  - BRADYCARDIA [None]
  - CARDIOGENIC SHOCK [None]
  - ELECTROCARDIOGRAM ABNORMAL [None]
  - HYPOTENSION [None]
  - OVERDOSE [None]
  - SINUS ARREST [None]
  - SOPOR [None]
